FAERS Safety Report 14701066 (Version 1)
Quarter: 2018Q1

REPORT INFORMATION
  Report Type: Spontaneous
  Country: US (occurrence: US)
  Receive Date: 20180328
  Receipt Date: 20180328
  Transmission Date: 20180509
  Serious: Yes (Hospitalization)
  Sender: FDA-Public Use
  Company Number: None

PATIENT
  Age: 14 Year
  Sex: Female

DRUGS (11)
  1. ZONISAMIDE. [Concomitant]
     Active Substance: ZONISAMIDE
  2. CITALOPRAM [Concomitant]
     Active Substance: CITALOPRAM HYDROBROMIDE
  3. OSELTAMIVIR [Concomitant]
     Active Substance: OSELTAMIVIR
  4. AMOXICILLIN. [Concomitant]
     Active Substance: AMOXICILLIN
  5. COMPLETE FORMULATION SOFTGEL MULTIVITAMIN [Concomitant]
     Active Substance: VITAMINS
  6. CIPROFLOXACIN. [Concomitant]
     Active Substance: CIPROFLOXACIN
  7. LAMOTRIGINE. [Concomitant]
     Active Substance: LAMOTRIGINE
  8. TOBI PODHALER [Concomitant]
     Active Substance: TOBRAMYCIN
  9. ORKAMBI [Suspect]
     Active Substance: IVACAFTOR\LUMACAFTOR
     Indication: CYSTIC FIBROSIS
     Dosage: DOSE - 200-125MG?FREQUENCY - 2 Q12H
     Route: 048
     Dates: start: 20150723
  10. FLUTICASONE. [Concomitant]
     Active Substance: FLUTICASONE
  11. LINEZOLID. [Concomitant]
     Active Substance: LINEZOLID

REACTIONS (1)
  - Hospitalisation [None]

NARRATIVE: CASE EVENT DATE: 20180327
